FAERS Safety Report 9516201 (Version 1)
Quarter: 2013Q1

REPORT INFORMATION
  Report Type: Spontaneous
  Country: US (occurrence: None)
  Receive Date: 20130305
  Receipt Date: 20130305
  Transmission Date: 20140127
  Serious: Yes (Hospitalization)
  Sender: FDA-Public Use
  Company Number: 163-21880-12113302

PATIENT
  Age: 75 Year
  Sex: Female
  Weight: 68.04 kg

DRUGS (10)
  1. REVLIMID [Suspect]
     Indication: PLASMA CELL MYELOMA
     Dosage: 10 MG, 21 IN 21 D, PO
     Dates: start: 20120815
  2. DEXAMETHASONE (DEXAMETHASONE) UNKNOWN) [Concomitant]
  3. XANAX (ALPRAZOLAM) (UNKNOWN) [Concomitant]
  4. FLUOXETINE (FLUOXETINE) (UNKNOWN)? [Concomitant]
  5. SIMVASTIN (SIMVASTATIN) (UNKNOWN) [Concomitant]
  6. ASPIRIN (UNKNOWN) [Concomitant]
  7. METOPROLOL (METOPROLOL) (UNKNOWN) [Concomitant]
  8. FISH OIL (FISH OIL) (UNKNOWN) [Concomitant]
  9. GLUCOSAMINE-CHONDROITIN (UNKNOWN) [Concomitant]
  10. MVI (MVI) (UNKNOWN) [Concomitant]

REACTIONS (1)
  - Clostridium difficile infection [None]
